FAERS Safety Report 6059051-6 (Version None)
Quarter: 2009Q1

REPORT INFORMATION
  Report Type: 
  Country: None (occurrence: None)
  Receive Date: 20090130
  Receipt Date: 20090119
  Transmission Date: 20090719
  Serious: Yes (Hospitalization)
  Sender: FDA-Public Use
  Company Number: B0554850A

PATIENT
  Age: 2 Month
  Sex: Male
  Weight: 4.1 kg

DRUGS (5)
  1. AUGMENTIN '125' [Suspect]
     Route: 048
     Dates: start: 20081212
  2. BRONCHOKOD [Suspect]
     Dosage: 1UNIT PER DAY
     Route: 048
     Dates: start: 20081212, end: 20081214
  3. PIVALONE [Suspect]
     Route: 045
     Dates: start: 20081212
  4. INFANRIXQUINTA [Concomitant]
     Indication: PROPHYLAXIS
     Route: 065
     Dates: start: 20081208, end: 20081208
  5. PREVENAR [Concomitant]
     Indication: PROPHYLAXIS
     Dates: start: 20081208, end: 20081208

REACTIONS (11)
  - COUGH [None]
  - CREPITATIONS [None]
  - DYSPNOEA [None]
  - EATING DISORDER [None]
  - FATIGUE [None]
  - INTERCOSTAL RETRACTION [None]
  - PAINFUL RESPIRATION [None]
  - PRODUCTIVE COUGH [None]
  - RALES [None]
  - RESPIRATORY DEPRESSION [None]
  - TACHYPNOEA [None]
